FAERS Safety Report 6709690-1 (Version None)
Quarter: 2010Q2

REPORT INFORMATION
  Report Type: 
  Country: None (occurrence: None)
  Receive Date: 20100504
  Receipt Date: 20100422
  Transmission Date: 20101027
  Serious: Yes (Other)
  Sender: FDA-Public Use
  Company Number: AT-BAYER-201023660GPV

PATIENT
  Sex: Female

DRUGS (2)
  1. BETAFERON [Suspect]
     Indication: MULTIPLE SCLEROSIS
     Dates: start: 20100305, end: 20100401
  2. CIPRALEX [Concomitant]
     Indication: DEPRESSION
     Dates: start: 20090101

REACTIONS (3)
  - ANGIOEDEMA [None]
  - GENERALISED ERYTHEMA [None]
  - SWELLING [None]
